FAERS Safety Report 9630062 (Version 1)
Quarter: 2013Q4

REPORT INFORMATION
  Report Type: Spontaneous
  Country: FR (occurrence: FR)
  Receive Date: 20131017
  Receipt Date: 20131017
  Transmission Date: 20140711
  Serious: Yes (Life-Threatening, Hospitalization, Other)
  Sender: FDA-Public Use
  Company Number: FR-BAXTER-2013BAX039690

PATIENT
  Age: 6 Year
  Sex: Male
  Weight: 22.2 kg

DRUGS (9)
  1. HOLOXAN 1000 MG, POUDRE POUR SOLUTION INJECTABLE [Suspect]
     Indication: OSTEOSARCOMA METASTATIC
     Route: 042
     Dates: start: 20130912, end: 20130915
  2. UROMITEXAN 1 G/10 ML, SOLUTION INJECTABLE POUR PERFUSION EN FLACON [Suspect]
     Indication: PRODUCT USED FOR UNKNOWN INDICATION
     Route: 042
     Dates: start: 20130912, end: 20130915
  3. ETOPOSIDE [Suspect]
     Indication: OSTEOSARCOMA METASTATIC
     Route: 042
     Dates: start: 20130912, end: 20130915
  4. PLITICAN [Suspect]
     Indication: VOMITING
     Route: 042
     Dates: start: 20130912, end: 20130915
  5. METHOTREXATE [Concomitant]
     Indication: OSTEOSARCOMA
     Route: 065
     Dates: start: 20130822
  6. METHOTREXATE [Concomitant]
     Route: 065
     Dates: start: 20130829
  7. METHOTREXATE [Concomitant]
     Route: 065
     Dates: start: 20130905
  8. ZOMETA [Concomitant]
     Indication: PRODUCT USED FOR UNKNOWN INDICATION
     Dates: start: 20130825
  9. CALCIUM GLUCONATE [Concomitant]
     Indication: HYPOCALCAEMIA
     Route: 042

REACTIONS (1)
  - Pancytopenia [Recovered/Resolved]
